FAERS Safety Report 15582126 (Version 2)
Quarter: 2018Q4

REPORT INFORMATION
  Report Type: Report from Study
  Country: US (occurrence: US)
  Receive Date: 20181105
  Receipt Date: 20181212
  Transmission Date: 20190205
  Serious: No
  Sender: FDA-Public Use
  Company Number: US-ROCHE-2151197

PATIENT
  Age: 51 Year
  Sex: Female

DRUGS (2)
  1. OCREVUS [Suspect]
     Active Substance: OCRELIZUMAB
     Indication: RELAPSING MULTIPLE SCLEROSIS
     Dosage: ONGOING : UNKNOWN?SECOND DOSE (FIRST FULL DOSE)
     Route: 065
     Dates: start: 20180604
  2. OCREVUS [Suspect]
     Active Substance: OCRELIZUMAB
     Dosage: ONGOING: YES?MOST RECENT OCRELIZUMAB INFUSION ON 06/DEC/2018
     Route: 065
     Dates: start: 20171120

REACTIONS (4)
  - Blood pressure increased [Unknown]
  - Diarrhoea [Recovering/Resolving]
  - Influenza [Recovering/Resolving]
  - Asthenia [Unknown]

NARRATIVE: CASE EVENT DATE: 20180604
